FAERS Safety Report 9786217 (Version 2)
Quarter: 2014Q1

REPORT INFORMATION
  Report Type: Spontaneous
  Country: IT (occurrence: IT)
  Receive Date: 20131227
  Receipt Date: 20140220
  Transmission Date: 20141002
  Serious: Yes (Hospitalization)
  Sender: FDA-Public Use
  Company Number: IT-BRISTOL-MYERS SQUIBB COMPANY-19935378

PATIENT
  Age: 82 Year
  Sex: Female

DRUGS (5)
  1. COUMADIN TABS 5 MG [Suspect]
     Indication: ATRIAL FIBRILLATION
     Dosage: INTER ON 15OCT13
     Route: 048
     Dates: start: 20130402
  2. FUROSEMIDE [Concomitant]
  3. PARIET [Concomitant]
  4. ALDACTONE [Concomitant]
  5. LENDORMIN [Concomitant]

REACTIONS (1)
  - Anaemia [Recovering/Resolving]
